FAERS Safety Report 5589456-9 (Version None)
Quarter: 2008Q1

REPORT INFORMATION
  Report Type: 
  Country: None (occurrence: None)
  Receive Date: 20080109
  Receipt Date: 20080102
  Transmission Date: 20080703
  Serious: Yes (Life-Threatening, Hospitalization, Other)
  Sender: FDA-Public Use
  Company Number: 100#08#2008-00018

PATIENT
  Age: 41 Year
  Sex: Female

DRUGS (2)
  1. DICLOFENAC                    (DICLOFENAC) [Suspect]
     Indication: SUICIDE ATTEMPT
     Dosage: 1.5 G (30 TABLETS OF 50 MG) ORAL
     Route: 048
  2. AMITRIPTYLINE HCL [Suspect]
     Indication: SUICIDE ATTEMPT
     Dosage: 11.25 G (150 TABLETS OF 75 MG) ORAL
     Route: 048

REACTIONS (16)
  - ALANINE AMINOTRANSFERASE INCREASED [None]
  - ASPARTATE AMINOTRANSFERASE INCREASED [None]
  - BLOOD CREATINE INCREASED [None]
  - COMA [None]
  - DRUG TOXICITY [None]
  - ELECTROMECHANICAL DISSOCIATION [None]
  - HYPOTENSION [None]
  - HYPOTHERMIA [None]
  - INTENTIONAL OVERDOSE [None]
  - METABOLIC ACIDOSIS [None]
  - PNEUMONIA [None]
  - PUPIL FIXED [None]
  - RESPIRATORY ACIDOSIS [None]
  - SHOCK [None]
  - SUICIDE ATTEMPT [None]
  - VENTRICULAR FIBRILLATION [None]
